FAERS Safety Report 7780767-5 (Version None)
Quarter: 2011Q3

REPORT INFORMATION
  Report Type: 
  Country: None (occurrence: None)
  Receive Date: 20110927
  Receipt Date: 20110927
  Transmission Date: 20111222
  Serious: Yes (Hospitalization)
  Sender: FDA-Public Use
  Company Number: PL-ABBOTT-11P-129-0856243-00

PATIENT
  Age: 23 Year
  Sex: Male

DRUGS (2)
  1. PHENOXYMETHYL PENICILLIN [Suspect]
     Indication: PRODUCT USED FOR UNKNOWN INDICATION
  2. CLARITHROMYCIN [Suspect]
     Indication: PRODUCT USED FOR UNKNOWN INDICATION

REACTIONS (9)
  - PYREXIA [None]
  - RASH ERYTHEMATOUS [None]
  - OEDEMA [None]
  - JOINT RANGE OF MOTION DECREASED [None]
  - ERYTHEMA NODOSUM [None]
  - OROPHARYNGEAL PAIN [None]
  - NIGHT SWEATS [None]
  - ARTHRALGIA [None]
  - ASTHENIA [None]
